FAERS Safety Report 24205440 (Version 2)
Quarter: 2024Q3

REPORT INFORMATION
  Report Type: Report from Study
  Country: CL (occurrence: CL)
  Receive Date: 20240813
  Receipt Date: 20240822
  Transmission Date: 20241017
  Serious: Yes (Other)
  Sender: UCB
  Company Number: CL-UCBSA-2024040681

PATIENT
  Sex: Female

DRUGS (1)
  1. ROTIGOTINE [Suspect]
     Active Substance: ROTIGOTINE
     Indication: Parkinson^s disease
     Dosage: 4 MILLIGRAM, ONCE DAILY (QD)
     Route: 062
     Dates: start: 20231021

REACTIONS (4)
  - Dementia Alzheimer^s type [Unknown]
  - Mental disorder [Unknown]
  - Hypersensitivity [Unknown]
  - Muscle spasms [Unknown]
